FAERS Safety Report 5771185-X (Version None)
Quarter: 2008Q2

REPORT INFORMATION
  Report Type: 
  Country: None (occurrence: None)
  Receive Date: 20080613
  Receipt Date: 20080529
  Transmission Date: 20081010
  Serious: No
  Sender: FDA-Public Use
  Company Number: US-ABBOTT-08P-163-0455045-00

PATIENT
  Weight: 53.572 kg

DRUGS (4)
  1. HUMIRA [Suspect]
     Indication: CROHN'S DISEASE
     Dosage: 4 PENS
     Route: 058
     Dates: start: 20080521, end: 20080521
  2. HUMIRA [Suspect]
     Route: 058
     Dates: start: 20080529, end: 20080529
  3. ENDOCORTISONE [Concomitant]
     Indication: CROHN'S DISEASE
     Route: 048
  4. BALSALAZIDE DISODIUM [Concomitant]
     Indication: CROHN'S DISEASE
     Route: 048

REACTIONS (2)
  - HYPERSENSITIVITY [None]
  - SINUSITIS [None]
